FAERS Safety Report 23394845 (Version 2)
Quarter: 2024Q2

REPORT INFORMATION
  Report Type: Report from Study
  Country: US (occurrence: US)
  Receive Date: 20240112
  Receipt Date: 20240510
  Transmission Date: 20240716
  Serious: No
  Sender: FDA-Public Use
  Company Number: US-ACADIA PHARMACEUTICALS INC.-ACA-2023-TRF-005920

PATIENT
  Sex: Female

DRUGS (2)
  1. DAYBUE [Suspect]
     Active Substance: TROFINETIDE
     Dosage: 10 MILLILITER
     Route: 065
  2. DAYBUE [Suspect]
     Active Substance: TROFINETIDE
     Dosage: 40 MILLILITER
     Route: 065

REACTIONS (6)
  - Gastrointestinal disorder [Unknown]
  - Flatulence [Unknown]
  - Blister infected [Unknown]
  - Product dose omission issue [Unknown]
  - Diarrhoea [Unknown]
  - Diarrhoea [Unknown]
